FAERS Safety Report 15305282 (Version 2)
Quarter: 2024Q2

REPORT INFORMATION
  Report Type: Spontaneous
  Country: US (occurrence: US)
  Receive Date: 20180822
  Receipt Date: 20240415
  Transmission Date: 20240715
  Serious: No
  Sender: FDA-Public Use
  Company Number: US-BIOGEN-2018BI00623380

PATIENT
  Sex: Female

DRUGS (1)
  1. TYSABRI [Suspect]
     Active Substance: NATALIZUMAB
     Indication: Multiple sclerosis
     Dosage: INFUSED FOR OVER 1 HOUR
     Route: 050
     Dates: start: 20150504

REACTIONS (5)
  - Cognitive disorder [Not Recovered/Not Resolved]
  - Neuralgia [Unknown]
  - Migraine [Unknown]
  - Anxiety [Unknown]
  - Depression [Unknown]
